FAERS Safety Report 8582417-7 (Version None)
Quarter: 2012Q3

REPORT INFORMATION
  Report Type: 
  Country: None (occurrence: None)
  Receive Date: 20120809
  Receipt Date: 20120803
  Transmission Date: 20120928
  Serious: Yes (Other)
  Sender: FDA-Public Use
  Company Number: GB-GLAXOSMITHKLINE-B0815161A

PATIENT
  Sex: Female

DRUGS (4)
  1. POTIGA [Suspect]
     Indication: EPILEPSY
     Dosage: 50MG THREE TIMES PER DAY
     Route: 065
     Dates: start: 20120401, end: 20120701
  2. PIZOTIFEN [Concomitant]
     Indication: MIGRAINE
     Dosage: 500MG PER DAY
     Dates: start: 20090101
  3. TOPIRAMATE [Concomitant]
     Indication: EPILEPSY
     Dosage: 800MG PER DAY
     Dates: start: 20090101
  4. LAMOTRIGINE [Concomitant]
     Indication: EPILEPSY
     Dates: start: 20090101

REACTIONS (1)
  - CONVULSION [None]
